FAERS Safety Report 9080670 (Version 1)
Quarter: 2013Q1

REPORT INFORMATION
  Report Type: Report from Study
  Country: US (occurrence: US)
  Receive Date: 20130130
  Receipt Date: 20130130
  Transmission Date: 20140127
  Serious: No
  Sender: FDA-Public Use
  Company Number: US-ABBOTT-12P-163-0969670-00

PATIENT
  Age: 48 Year
  Sex: Female

DRUGS (12)
  1. HUMIRA 40 MG/0.8 ML PEN [Suspect]
     Indication: COLITIS ULCERATIVE
     Route: 058
     Dates: start: 20120720, end: 20120720
  2. HUMIRA 40 MG/0.8 ML PEN [Suspect]
     Route: 058
     Dates: start: 20120803, end: 20120803
  3. HUMIRA 40 MG/0.8 ML PEN [Suspect]
     Route: 058
  4. LEVOTHYROXINE [Concomitant]
     Indication: HYPOTHYROIDISM
  5. CHOLECALCIFEROL WITH VIT D [Concomitant]
     Indication: PRODUCT USED FOR UNKNOWN INDICATION
  6. VITAMIN D [Concomitant]
     Indication: PRODUCT USED FOR UNKNOWN INDICATION
     Dosage: A WEEK
  7. ESTRADIOL [Concomitant]
     Indication: HORMONE REPLACEMENT THERAPY
     Dosage: 1MG DAILY
  8. ASACOL [Concomitant]
     Indication: COLITIS ULCERATIVE
     Dosage: 6 PILLS IN AM AND 6 PILLS IN PM
  9. IMITREX [Concomitant]
     Indication: MIGRAINE
  10. VALTREX [Concomitant]
     Indication: MOUTH ULCERATION
     Dosage: HAD NOT STARTED TAKING YET
  11. VALTREX [Concomitant]
     Indication: HERPES SIMPLEX
  12. TRAZODONE [Concomitant]
     Indication: INSOMNIA

REACTIONS (1)
  - Alopecia [Not Recovered/Not Resolved]
